FAERS Safety Report 7161564-0 (Version None)
Quarter: 2010Q4

REPORT INFORMATION
  Report Type: 
  Country: None (occurrence: None)
  Receive Date: 20101215
  Receipt Date: 20101208
  Transmission Date: 20110411
  Serious: Yes (Death, Hospitalization)
  Sender: FDA-Public Use
  Company Number: US-CELGENEUS-163-21880-10072621

PATIENT
  Sex: Female

DRUGS (5)
  1. REVLIMID [Suspect]
     Indication: DIFFUSE LARGE B-CELL LYMPHOMA
     Route: 048
     Dates: start: 20100524, end: 20100624
  2. REVLIMID [Suspect]
     Route: 048
     Dates: start: 20100708, end: 20100731
  3. SYNTHROID [Concomitant]
     Route: 065
  4. HYDROCHLOROTHIAZIDE [Concomitant]
     Route: 065
  5. GLIPIZIDE [Concomitant]
     Route: 065

REACTIONS (7)
  - CONSTIPATION [None]
  - CRUSH INJURY [None]
  - DEATH [None]
  - DYSPNOEA [None]
  - NERVE INJURY [None]
  - SKELETAL INJURY [None]
  - TUMOUR INVASION [None]
